FAERS Safety Report 11256019 (Version 1)
Quarter: 2015Q3

REPORT INFORMATION
  Report Type: Report from Study
  Country: LB (occurrence: LB)
  Receive Date: 20150709
  Receipt Date: 20150709
  Transmission Date: 20151125
  Serious: Yes (Death)
  Sender: FDA-Public Use
  Company Number: LB-SA-2015SA099284

PATIENT
  Age: 79 Year
  Sex: Female
  Weight: 47 kg

DRUGS (5)
  1. PRIMPERAN [Concomitant]
     Active Substance: METOCLOPRAMIDE HYDROCHLORIDE
     Dosage: 10 MG
     Route: 048
  2. LANOXIN [Concomitant]
     Active Substance: DIGOXIN
     Dosage: 0.25 MG
     Route: 048
  3. OXALIPLATIN. [Suspect]
     Active Substance: OXALIPLATIN
     Indication: COLON CANCER
     Route: 065
  4. 5-FU [Suspect]
     Active Substance: FLUOROURACIL
     Indication: COLON CANCER
     Route: 065
  5. AMLOR [Concomitant]
     Active Substance: AMLODIPINE BESYLATE
     Dosage: 5MG
     Route: 048

REACTIONS (2)
  - Disease progression [Fatal]
  - Dyspnoea [Fatal]

NARRATIVE: CASE EVENT DATE: 20130605
